FAERS Safety Report 24822889 (Version 1)
Quarter: 2025Q1

REPORT INFORMATION
  Report Type: Spontaneous
  Country: GR (occurrence: GR)
  Receive Date: 20250109
  Receipt Date: 20250109
  Transmission Date: 20250408
  Serious: Yes (Hospitalization)
  Sender: NOVITIUM PHARMA
  Company Number: GR-NOVITIUMPHARMA-2025GRNVP00053

PATIENT
  Age: 42 Year
  Sex: Male

DRUGS (1)
  1. CIMETIDINE [Suspect]
     Active Substance: CIMETIDINE
     Indication: Product used for unknown indication

REACTIONS (2)
  - Hypoperfusion [Unknown]
  - Sinus bradycardia [Recovered/Resolved]
